FAERS Safety Report 9847146 (Version 2)
Quarter: 2014Q3

REPORT INFORMATION
  Report Type: Spontaneous
  Country: US (occurrence: US)
  Receive Date: 20140127
  Receipt Date: 20140828
  Transmission Date: 20150326
  Serious: No
  Sender: FDA-Public Use
  Company Number: US-009507513-1401USA012126

PATIENT
  Sex: Female

DRUGS (1)
  1. NUVARING [Suspect]
     Active Substance: ETHINYL ESTRADIOL\ETONOGESTREL
     Indication: CONTRACEPTION
     Dosage: 0.12/0.015 MG/24 HR,1 RING IN 3 WEEKS REMOVE 1 WEEK
     Route: 067
     Dates: start: 20081023

REACTIONS (6)
  - Post-traumatic stress disorder [Unknown]
  - Genital herpes [Unknown]
  - Sexually transmitted disease [Unknown]
  - Substance abuse [Unknown]
  - Bipolar disorder [Unknown]
  - Deep vein thrombosis [Unknown]

NARRATIVE: CASE EVENT DATE: 20090310
